FAERS Safety Report 10446989 (Version 2)
Quarter: 2014Q4

REPORT INFORMATION
  Report Type: Report from Study
  Country: NL (occurrence: NL)
  Receive Date: 20140911
  Receipt Date: 20141014
  Transmission Date: 20150528
  Serious: Yes (Hospitalization)
  Sender: FDA-Public Use
  Company Number: NL-TEVA-507513ISR

PATIENT
  Age: 29 Year
  Sex: Male
  Weight: 58 kg

DRUGS (5)
  1. VITAMINE D [Concomitant]
     Dosage: 1 TABLET DAILY;
  2. TAMSULOSINE [Concomitant]
     Active Substance: TAMSULOSIN HYDROCHLORIDE
     Dosage: .4 MILLIGRAM DAILY;
  3. CYMBALTA [Concomitant]
     Active Substance: DULOXETINE HYDROCHLORIDE
     Dosage: 60 MILLIGRAM DAILY;
  4. BACLOFEN. [Concomitant]
     Active Substance: BACLOFEN
  5. COPAXONE [Suspect]
     Active Substance: GLATIRAMER ACETATE
     Dosage: 20 MG/ML DAILY;
     Route: 058
     Dates: start: 20140527, end: 20140902

REACTIONS (6)
  - Swelling face [Recovering/Resolving]
  - Faecal incontinence [Recovered/Resolved]
  - Chest discomfort [Recovered/Resolved]
  - Immediate post-injection reaction [Recovered/Resolved]
  - Vomiting [Recovered/Resolved]
  - Anxiety [Recovered/Resolved]

NARRATIVE: CASE EVENT DATE: 20140902
